FAERS Safety Report 13678425 (Version 1)
Quarter: 2017Q2

REPORT INFORMATION
  Report Type: Spontaneous
  Country: US (occurrence: US)
  Receive Date: 20170621
  Receipt Date: 20170621
  Transmission Date: 20170830
  Serious: Yes (Disabling)
  Sender: FDA-Public Use
  Company Number: None

PATIENT
  Age: 53 Year
  Sex: Female
  Weight: 78.75 kg

DRUGS (6)
  1. HYDROXYZINE HCL [Concomitant]
     Active Substance: HYDROXYZINE HYDROCHLORIDE
  2. DIPHENHYDRAMINE. [Concomitant]
     Active Substance: DIPHENHYDRAMINE
  3. METHYLPREDNISOLONE. [Concomitant]
     Active Substance: METHYLPREDNISOLONE
  4. LISINOPRIL. [Concomitant]
     Active Substance: LISINOPRIL
  5. BACTRIM DS [Suspect]
     Active Substance: SULFAMETHOXAZOLE\TRIMETHOPRIM
  6. FERROUS [Concomitant]
     Active Substance: IRON

REACTIONS (12)
  - Pruritus generalised [None]
  - Chills [None]
  - Swelling [None]
  - Urticaria [None]
  - Dizziness [None]
  - Dysstasia [None]
  - Asthenia [None]
  - Pyrexia [None]
  - Tremor [None]
  - Impaired work ability [None]
  - Cough [None]
  - Dyspnoea [None]

NARRATIVE: CASE EVENT DATE: 20170517
